FAERS Safety Report 9602386 (Version 1)
Quarter: 2013Q4

REPORT INFORMATION
  Report Type: Spontaneous
  Country: US (occurrence: US)
  Receive Date: 20131007
  Receipt Date: 20131007
  Transmission Date: 20140711
  Serious: No
  Sender: FDA-Public Use
  Company Number: US-GLAXOSMITHKLINE-A1039192A

PATIENT
  Sex: Female

DRUGS (1)
  1. BENLYSTA [Suspect]
     Indication: SYSTEMIC LUPUS ERYTHEMATOSUS
     Dosage: 120MG EVERY 28 DAYS
     Route: 065
     Dates: start: 201207

REACTIONS (6)
  - Malaise [Unknown]
  - Chest pain [Unknown]
  - Arthralgia [Unknown]
  - Myalgia [Unknown]
  - Fatigue [Unknown]
  - Humidity intolerance [Unknown]
